FAERS Safety Report 14962677 (Version 6)
Quarter: 2019Q2

REPORT INFORMATION
  Report Type: Report from Study
  Country: GB (occurrence: GB)
  Receive Date: 20180601
  Receipt Date: 20190526
  Transmission Date: 20190711
  Serious: Yes (Disabling, Other)
  Sender: FDA-Public Use
  Company Number: GB-BIOGEN-2018BI00587038

PATIENT
  Age: 51 Year
  Sex: Female

DRUGS (4)
  1. GILENYA [Suspect]
     Active Substance: FINGOLIMOD HYDROCHLORIDE
     Indication: MULTIPLE SCLEROSIS
     Route: 050
     Dates: start: 20140328, end: 20140523
  2. TECFIDERA [Suspect]
     Active Substance: DIMETHYL FUMARATE
     Indication: PRODUCT USED FOR UNKNOWN INDICATION
     Route: 050
     Dates: start: 20151124, end: 20170913
  3. TRIAMCINOLONE [Concomitant]
     Active Substance: TRIAMCINOLONE
     Indication: PRODUCT USED FOR UNKNOWN INDICATION
     Dosage: 2 MG, ONCE/SINGLE
     Route: 050
     Dates: start: 20170928
  4. BETNESOL V [Concomitant]
     Indication: PRODUCT USED FOR UNKNOWN INDICATION
     Route: 050
     Dates: start: 20170717, end: 20170717

REACTIONS (6)
  - Balance disorder [Unknown]
  - Paraesthesia [Unknown]
  - Uveitis [Not Recovered/Not Resolved]
  - Nausea [Unknown]
  - Cervical spinal stenosis [Unknown]
  - Extensor plantar response [Unknown]

NARRATIVE: CASE EVENT DATE: 20160928
